FAERS Safety Report 10538570 (Version 3)
Quarter: 2015Q3

REPORT INFORMATION
  Report Type: Spontaneous
  Country: US (occurrence: US)
  Receive Date: 20141023
  Receipt Date: 20150803
  Transmission Date: 20151125
  Serious: Yes (Hospitalization, Other)
  Sender: FDA-Public Use
  Company Number: US-GLAXOSMITHKLINE-A0966434A

PATIENT
  Age: 17 Year
  Sex: Male
  Weight: 90.9 kg

DRUGS (13)
  1. ADVAIR HFA [Suspect]
     Active Substance: FLUTICASONE PROPIONATE\SALMETEROL XINAFOATE
     Indication: ASTHMA
     Dosage: 1 PUFF(S), BID
     Route: 055
     Dates: start: 2001, end: 2013
  2. GABAPENTIN. [Concomitant]
     Active Substance: GABAPENTIN
  3. VENTOLIN [Suspect]
     Active Substance: ALBUTEROL SULFATE
     Dosage: UNK, U
  4. OXYCODONE [Concomitant]
     Active Substance: OXYCODONE
  5. ANDRODERM [Suspect]
     Active Substance: TESTOSTERONE
     Indication: BLOOD TESTOSTERONE DECREASED
     Dosage: 1 DF, QD
     Route: 062
     Dates: start: 200912
  6. ADVAIR HFA [Suspect]
     Active Substance: FLUTICASONE PROPIONATE\SALMETEROL XINAFOATE
     Dosage: 500/50 MCG, U
  7. SINGULAIR [Concomitant]
     Active Substance: MONTELUKAST SODIUM
  8. VENTOLIN [Suspect]
     Active Substance: ALBUTEROL SULFATE
     Indication: ASTHMA
     Dosage: 2-6 PUFFS PRN
     Route: 055
     Dates: start: 198110
  9. BIOTENE ORAL BALANCE GEL (2013 FORMULATION) [Suspect]
     Active Substance: XYLITOL
     Indication: DRY MOUTH
     Dosage: UNK, U
     Dates: start: 2014
  10. VALIUM [Concomitant]
     Active Substance: DIAZEPAM
  11. DUEXIS [Concomitant]
     Active Substance: FAMOTIDINE\IBUPROFEN
  12. ESCITALOPRAM [Suspect]
     Active Substance: ESCITALOPRAM OXALATE
     Indication: PRODUCT USED FOR UNKNOWN INDICATION
     Dosage: UNK, U
     Route: 065
  13. OXYCONTIN [Concomitant]
     Active Substance: OXYCODONE HYDROCHLORIDE

REACTIONS (24)
  - Intervertebral disc protrusion [Unknown]
  - Pulmonary congestion [Not Recovered/Not Resolved]
  - Disability [Not Recovered/Not Resolved]
  - Fluid retention [Not Recovered/Not Resolved]
  - Ataxia [Not Recovered/Not Resolved]
  - Application site pruritus [Recovering/Resolving]
  - Application site burn [Recovering/Resolving]
  - Asthma [Recovering/Resolving]
  - Accident at work [Unknown]
  - Joint swelling [Not Recovered/Not Resolved]
  - Ill-defined disorder [Not Recovered/Not Resolved]
  - Hypoaesthesia [Not Recovered/Not Resolved]
  - Drug ineffective [Unknown]
  - Surgery [Unknown]
  - Application site pain [Recovering/Resolving]
  - Migraine [Not Recovered/Not Resolved]
  - Overdose [Unknown]
  - Dyspnoea [Recovering/Resolving]
  - Back injury [Not Recovered/Not Resolved]
  - Spinal operation [Unknown]
  - Wheezing [Recovering/Resolving]
  - Visual impairment [Not Recovered/Not Resolved]
  - Pain [Unknown]
  - Oral infection [Unknown]

NARRATIVE: CASE EVENT DATE: 198110
